FAERS Safety Report 19653413 (Version 1)
Quarter: 2021Q3

REPORT INFORMATION
  Report Type: Spontaneous
  Country: FR (occurrence: BE)
  Receive Date: 20210804
  Receipt Date: 20210804
  Transmission Date: 20211014
  Serious: Yes (Other)
  Sender: FDA-Public Use
  Company Number: BE-B.I. PHARMACEUTICALS,INC./RIDGEFIELD-2021-BI-119122

PATIENT
  Sex: Male
  Weight: 58 kg

DRUGS (23)
  1. MONTELUKAST EG [Suspect]
     Active Substance: MONTELUKAST SODIUM
     Indication: PRODUCT USED FOR UNKNOWN INDICATION
     Dosage: 10 MG, QD
  2. RELVAR ELLIPTA [FLUTICASONE FUROATE;VILANTEROL TRIFENATATE] [Suspect]
     Active Substance: FLUTICASONE FUROATE\VILANTEROL TRIFENATATE
     Indication: PRODUCT USED FOR UNKNOWN INDICATION
     Dosage: 1 PUFF(S), QD 184?22 ?G/ACTUATION, 30 ACTUATION INHALER),
  3. SPIRIVA [Suspect]
     Active Substance: TIOTROPIUM BROMIDE MONOHYDRATE
     Indication: PRODUCT USED FOR UNKNOWN INDICATION
     Dosage: 2 PUFF(S), QD
  4. CALCIUM CARBONATE. [Suspect]
     Active Substance: CALCIUM CARBONATE
     Indication: PRODUCT USED FOR UNKNOWN INDICATION
     Dosage: 1 G, QD
  5. AZITRO [Suspect]
     Active Substance: AZITHROMYCIN
     Indication: PRODUCT USED FOR UNKNOWN INDICATION
     Dosage: UNK
  6. D?CURE [Suspect]
     Active Substance: CHOLECALCIFEROL
     Indication: PRODUCT USED FOR UNKNOWN INDICATION
     Dosage: UNK
  7. AMOXICLAV [Suspect]
     Active Substance: AMOXICILLIN\CLAVULANATE POTASSIUM
     Indication: PRODUCT USED FOR UNKNOWN INDICATION
     Dosage: 875 MG, QD 875 MG, Z 3 DAYS
  8. ASAFLOW [Suspect]
     Active Substance: ASPIRIN
     Indication: PRODUCT USED FOR UNKNOWN INDICATION
     Dosage: UNK
  9. XARELTO [Suspect]
     Active Substance: RIVAROXABAN
     Indication: PULMONARY EMBOLISM
     Dosage: 15 MG, QD
  10. INFLUENZA VACCINE [Suspect]
     Active Substance: INFLUENZA VIRUS VACCINE
     Indication: PRODUCT USED FOR UNKNOWN INDICATION
     Dosage: UNK
  11. NUCALA [Suspect]
     Active Substance: MEPOLIZUMAB
     Indication: ASTHMA
     Dosage: UNK
     Dates: start: 2019
  12. MOMETASONE [Suspect]
     Active Substance: MOMETASONE
     Indication: PRODUCT USED FOR UNKNOWN INDICATION
     Dosage: 2 PUFF(S), BID
  13. MEDROL [Suspect]
     Active Substance: METHYLPREDNISOLONE
     Indication: SINUSITIS
     Dosage: UNK, 7 MG/L
  14. MEDROL [Suspect]
     Active Substance: METHYLPREDNISOLONE
     Dosage: UNK UNK, QD, 4 MG/L
     Dates: start: 202010
  15. FRAXODI [Suspect]
     Active Substance: NADROPARIN CALCIUM
     Indication: PRODUCT USED FOR UNKNOWN INDICATION
     Dosage: UNK
  16. AUGMENTIN [Suspect]
     Active Substance: AMOXICILLIN\CLAVULANATE POTASSIUM
     Indication: PRODUCT USED FOR UNKNOWN INDICATION
     Dosage: UNK
  17. PNEUMOCOCCAL VACCINE POLYVALENT NOS [Suspect]
     Active Substance: PNEUMOCOCCAL VACCINE POLYVALENT
     Indication: PNEUMOCOCCAL INFECTION
     Dosage: UNK
  18. ACETYLCYSTEINE. [Suspect]
     Active Substance: ACETYLCYSTEINE
     Indication: SPUTUM RETENTION
     Dosage: 600 MG
  19. DUOVENT [Suspect]
     Active Substance: FENOTEROL HYDROBROMIDE
     Indication: DYSPNOEA
     Dosage: 2 PUFF(S), BID
  20. FLIXOTIDE [Suspect]
     Active Substance: FLUTICASONE PROPIONATE
     Indication: PRODUCT USED FOR UNKNOWN INDICATION
     Dosage: 2 PUFF(S), BID 250 UG
     Dates: start: 201707
  21. AMOXICILLIN. [Suspect]
     Active Substance: AMOXICILLIN
     Indication: PRODUCT USED FOR UNKNOWN INDICATION
     Dosage: UNK
  22. MEDROL [Suspect]
     Active Substance: METHYLPREDNISOLONE
     Indication: ASTHMA
     Dosage: 2 MG, QD
  23. AZITHROMYCIN ANHYDROUS. [Suspect]
     Active Substance: AZITHROMYCIN ANHYDROUS
     Indication: PRODUCT USED FOR UNKNOWN INDICATION
     Dosage: 500 MG, Z3/WEEK

REACTIONS (17)
  - Cough [Unknown]
  - Sputum purulent [Unknown]
  - Pulmonary embolism [Unknown]
  - Dyspnoea [Unknown]
  - Upper-airway cough syndrome [Unknown]
  - Bronchiectasis [Unknown]
  - Staphylococcal infection [Unknown]
  - Neutrophil count abnormal [Unknown]
  - Renal colic [Unknown]
  - Pain [Unknown]
  - Asthma [Unknown]
  - Bacterial infection [Unknown]
  - Condition aggravated [Unknown]
  - Chronic sinusitis [Unknown]
  - Drug ineffective [Unknown]
  - Productive cough [Unknown]
  - Haematoma [Unknown]

NARRATIVE: CASE EVENT DATE: 201705
